FAERS Safety Report 8255521-0 (Version None)
Quarter: 2012Q2

REPORT INFORMATION
  Report Type: 
  Country: None (occurrence: None)
  Receive Date: 20120403
  Receipt Date: 20120328
  Transmission Date: 20120825
  Serious: Yes (Other)
  Sender: FDA-Public Use
  Company Number: BR-PFIZER INC-2012080851

PATIENT
  Age: 66 Year
  Sex: Male
  Weight: 95 kg

DRUGS (6)
  1. SUTENT [Suspect]
     Indication: RENAL CANCER
     Dosage: 50 MG, 1X/DAY
     Route: 048
     Dates: start: 20110425
  2. DIOVAN [Concomitant]
     Indication: HYPERTENSION
     Dosage: 320 MG, 1X/DAY
  3. VYTORIN [Concomitant]
     Dosage: 10MG/20MG, 1X/DAY
  4. LANTUS [Concomitant]
     Indication: DIABETES MELLITUS
     Dosage: 14 IU, 1X/DAY
  5. FUROSEMIDE [Concomitant]
     Dosage: 1 TABLET (UNKNOWN DOSE) DAILY
  6. ENALAPRIL [Concomitant]
     Dosage: 10 MG, UNK

REACTIONS (4)
  - BLISTER [None]
  - NEPHROLITHIASIS [None]
  - RASH MACULAR [None]
  - DIARRHOEA [None]
